FAERS Safety Report 8622008-2 (Version None)
Quarter: 2012Q3

REPORT INFORMATION
  Report Type: 
  Country: None (occurrence: None)
  Receive Date: 20120823
  Receipt Date: 20120823
  Transmission Date: 20120928
  Serious: Yes (Other)
  Sender: FDA-Public Use
  Company Number: None

PATIENT
  Age: 66 Year
  Sex: Male
  Weight: 78.1 kg

DRUGS (1)
  1. BRILINTA [Suspect]
     Indication: ANTIPLATELET THERAPY
     Dosage: 180MG ONCE PO
     Route: 048
     Dates: start: 20120607, end: 20120607

REACTIONS (2)
  - CHEST PAIN [None]
  - CARDIAC ARREST [None]
